FAERS Safety Report 12083700 (Version 1)
Quarter: 2016Q1

REPORT INFORMATION
  Report Type: Spontaneous
  Country: US (occurrence: None)
  Receive Date: 20160216
  Receipt Date: 20160216
  Transmission Date: 20160526
  Serious: Yes (Other)
  Sender: FDA-Public Use
  Company Number: None

PATIENT

DRUGS (1)
  1. AFRIN [Suspect]
     Active Substance: OXYMETAZOLINE

REACTIONS (2)
  - Product packaging confusion [None]
  - Incorrect drug administration duration [None]
